FAERS Safety Report 9630437 (Version 1)
Quarter: 2013Q4

REPORT INFORMATION
  Report Type: Spontaneous
  Country: US (occurrence: US)
  Receive Date: 20131018
  Receipt Date: 20131018
  Transmission Date: 20140711
  Serious: Yes (Hospitalization)
  Sender: FDA-Public Use
  Company Number: US-BIOGENIDEC-2013BI097948

PATIENT
  Age: 56 Year
  Sex: Male

DRUGS (12)
  1. TECFIDERA [Suspect]
     Indication: MULTIPLE SCLEROSIS
     Route: 048
     Dates: start: 20130805
  2. AMITRIPTYLINE HCI [Concomitant]
  3. AVODART [Concomitant]
  4. FERROUS SULFATE [Concomitant]
  5. FLOMAX [Concomitant]
  6. HYDROCODONE ACETAMINOPHEN [Concomitant]
  7. IRON [Concomitant]
  8. OMEPRAZOLE [Concomitant]
  9. TAMSULOSIN HCI [Concomitant]
  10. TIZANIDINE HCI [Concomitant]
  11. VIAGRA [Concomitant]
  12. VITAMIN D3 [Concomitant]

REACTIONS (2)
  - Hypoaesthesia [Unknown]
  - Asthenia [Unknown]
